FAERS Safety Report 25079456 (Version 1)
Quarter: 2025Q1

REPORT INFORMATION
  Report Type: Spontaneous
  Country: IN (occurrence: IN)
  Receive Date: 20250314
  Receipt Date: 20250314
  Transmission Date: 20250409
  Serious: Yes (Other)
  Sender: PFIZER
  Company Number: IN-PFIZER INC-202200308404

PATIENT
  Age: 63 Year
  Sex: Female

DRUGS (3)
  1. AROMASIN [Suspect]
     Active Substance: EXEMESTANE
     Indication: Breast cancer
     Dates: start: 202012
  2. AROMASIN [Suspect]
     Active Substance: EXEMESTANE
     Route: 048
     Dates: start: 202108
  3. AROMASIN [Suspect]
     Active Substance: EXEMESTANE
     Dosage: 25 MG, 1X/DAY
     Route: 048

REACTIONS (5)
  - Hormone receptor positive breast cancer [Unknown]
  - Malignant neoplasm progression [Unknown]
  - Abdominal hernia [Unknown]
  - Pain in extremity [Unknown]
  - Chest pain [Unknown]

NARRATIVE: CASE EVENT DATE: 20210104
